FAERS Safety Report 16126404 (Version 1)
Quarter: 2019Q2

REPORT INFORMATION
  Report Type: Spontaneous
  Country: US (occurrence: US)
  Receive Date: 20190327
  Receipt Date: 20190327
  Transmission Date: 20190711
  Serious: Yes (Other)
  Sender: FDA-Public Use
  Company Number: None

PATIENT
  Age: 76 Year
  Sex: Male
  Weight: 70 kg

DRUGS (13)
  1. METOPROLOL ER 25MG [Concomitant]
  2. PERCOCET 5/325MG [Concomitant]
  3. PRADAXA [Concomitant]
     Active Substance: DABIGATRAN ETEXILATE MESYLATE
  4. PREDNISONE 20MG [Concomitant]
     Active Substance: PREDNISONE
  5. OCTAGAM IMMUNE GLOBULIN (HUMAN) [Suspect]
     Active Substance: HUMAN IMMUNOGLOBULIN G
     Indication: POLYNEUROPATHY
     Route: 042
  6. AMLODIPINE [Concomitant]
     Active Substance: AMLODIPINE BESYLATE
  7. ANUSOL-HC [Concomitant]
  8. FLUOROMETHALONE 0.1% [Concomitant]
  9. ASMANEX [Concomitant]
     Active Substance: MOMETASONE FUROATE
  10. ATORVASTATIN 20MG [Concomitant]
     Active Substance: ATORVASTATIN
  11. FLECAINIDE 150MG [Concomitant]
  12. BENICAR 40MG [Concomitant]
  13. NEXIUM 20MG [Concomitant]

REACTIONS (3)
  - Pruritus [None]
  - Eczema [None]
  - Rash [None]

NARRATIVE: CASE EVENT DATE: 20190217
